FAERS Safety Report 20348701 (Version 4)
Quarter: 2022Q1

REPORT INFORMATION
  Report Type: Report from Study
  Country: BE (occurrence: BE)
  Receive Date: 20220119
  Receipt Date: 20220204
  Transmission Date: 20220423
  Serious: Yes (Hospitalization)
  Sender: FDA-Public Use
  Company Number: BE-ABBVIE-22K-013-4237832-00

PATIENT
  Age: 79 Year
  Sex: Female

DRUGS (9)
  1. CARBIDOPA\LEVODOPA [Suspect]
     Active Substance: CARBIDOPA\LEVODOPA
     Indication: Parkinson^s disease
     Dosage: MD 6.0 ML; CD 5.5ML/H; ED 2.0 ML; DURING 16 HRS
     Route: 050
     Dates: start: 20220112, end: 202201
  2. CARBIDOPA\LEVODOPA [Suspect]
     Active Substance: CARBIDOPA\LEVODOPA
     Dosage: MD 6.0 ML; CD 5.5ML/H; ED 2.0 ML;
     Route: 050
     Dates: start: 202201
  3. SINEMET [Concomitant]
     Active Substance: CARBIDOPA\LEVODOPA
     Indication: Product used for unknown indication
     Dosage: AT 00.04H,16.00,18.30,21.00 IF NECESSARY
  4. STALEVO [Concomitant]
     Active Substance: CARBIDOPA\ENTACAPONE\LEVODOPA
     Indication: Product used for unknown indication
     Dosage: AT 06.45,09.15, 11.45, 13.45
  5. XADAGO [Concomitant]
     Active Substance: SAFINAMIDE MESYLATE
     Indication: Product used for unknown indication
     Dosage: AT 08.00
  6. SINEMET LP RETARD [Concomitant]
     Indication: Product used for unknown indication
     Dosage: AT 22.00
  7. FLUDROCORTISONE [Concomitant]
     Active Substance: FLUDROCORTISONE
     Indication: Product used for unknown indication
  8. HALOPERIDOL [Concomitant]
     Active Substance: HALOPERIDOL
     Indication: Product used for unknown indication
     Dosage: 2 OR 3 / DAY
  9. MELATONIN [Concomitant]
     Active Substance: MELATONIN
     Indication: Product used for unknown indication
     Dosage: AT BEDTIME

REACTIONS (5)
  - Pneumothorax [Unknown]
  - Acute pulmonary oedema [Unknown]
  - Acute myocardial infarction [Unknown]
  - Pain [Unknown]
  - Enteral nutrition [Unknown]

NARRATIVE: CASE EVENT DATE: 20220101
